FAERS Safety Report 24897627 (Version 1)
Quarter: 2025Q1

REPORT INFORMATION
  Report Type: Spontaneous
  Country: CA (occurrence: CA)
  Receive Date: 20250129
  Receipt Date: 20250129
  Transmission Date: 20250409
  Serious: Yes (Hospitalization, Other)
  Sender: CSL BEHRING
  Company Number: CA-BEH-2025193189

PATIENT
  Age: 68 Year
  Sex: Male
  Weight: 72 kg

DRUGS (8)
  1. HUMAN IMMUNOGLOBULIN G [Suspect]
     Active Substance: HUMAN IMMUNOGLOBULIN G
     Indication: Immune thrombocytopenia
     Dosage: QD
     Route: 042
  2. LANTUS [Concomitant]
     Active Substance: INSULIN GLARGINE
  3. LEVOTHYROXINE [Concomitant]
     Active Substance: LEVOTHYROXINE
  4. NOVORAPID [Suspect]
     Active Substance: INSULIN ASPART
     Indication: Product used for unknown indication
     Route: 058
  5. NOVORAPID [Suspect]
     Active Substance: INSULIN ASPART
     Route: 058
  6. PANTOPRAZOLE SODIUM [Concomitant]
     Active Substance: PANTOPRAZOLE SODIUM
  7. PREDNISONE [Suspect]
     Active Substance: PREDNISONE
     Indication: Liver disorder
     Dosage: 30 MG, QD
     Route: 048
  8. PREDNISONE [Suspect]
     Active Substance: PREDNISONE
     Indication: Immune thrombocytopenia
     Route: 048

REACTIONS (6)
  - Helicobacter infection [Unknown]
  - Abdominal pain [Unknown]
  - Dehydration [Unknown]
  - Hyperglycaemia [Unknown]
  - Malaise [Unknown]
  - Urinary tract infection [Unknown]
